FAERS Safety Report 5453552-7 (Version None)
Quarter: 2007Q3

REPORT INFORMATION
  Report Type: 
  Country: None (occurrence: None)
  Receive Date: 20070913
  Receipt Date: 20070903
  Transmission Date: 20080115
  Serious: Yes (Hospitalization)
  Sender: FDA-Public Use
  Company Number: GXKR2007JP07665

PATIENT
  Age: 4 Year
  Sex: Male

DRUGS (2)
  1. CYCLOSPORINE [Suspect]
     Indication: GLOMERULOSCLEROSIS
     Dosage: 80 MG, DAILY
  2. METHYLPREDNISOLONE [Concomitant]

REACTIONS (7)
  - CONVULSIONS LOCAL [None]
  - GAZE PALSY [None]
  - HYPERTENSION [None]
  - LEUKOENCEPHALOPATHY [None]
  - LOSS OF CONSCIOUSNESS [None]
  - TONIC CONVULSION [None]
  - VISION BLURRED [None]
